FAERS Safety Report 9174388 (Version 1)
Quarter: 2013Q1

REPORT INFORMATION
  Report Type: Spontaneous
  Country: ZA (occurrence: None)
  Receive Date: 20130318
  Receipt Date: 20130318
  Transmission Date: 20140127
  Serious: Yes (Death)
  Sender: FDA-Public Use
  Company Number: 1638228

PATIENT
  Age: 60 Year
  Sex: Male

DRUGS (6)
  1. DEXMEDETOMIDINE HYDROCHLORIDE [Suspect]
     Indication: SEDATIVE THERAPY
     Dates: start: 20120706
  2. DEXMEDETOMIDINE HYDROCHLORIDE [Suspect]
     Indication: SEDATIVE THERAPY
     Dates: start: 20120706
  3. DEXMEDETOMIDINE HYDROCHLORIDE [Suspect]
     Indication: CHRONIC OBSTRUCTIVE PULMONARY DISEASE
     Dates: start: 20120706
  4. DEXMEDETOMIDINE HYDROCHLORIDE [Suspect]
     Indication: DELIRIUM
     Dates: start: 20120706
  5. DIPRIVAN [Concomitant]
  6. ATIVAN [Concomitant]

REACTIONS (3)
  - Myocardial infarction [None]
  - Respiratory failure [None]
  - Off label use [None]
